FAERS Safety Report 24132908 (Version 1)
Quarter: 2024Q3

REPORT INFORMATION
  Report Type: Report from Study
  Country: US (occurrence: US)
  Receive Date: 20240724
  Receipt Date: 20240724
  Transmission Date: 20241016
  Serious: Yes (Hospitalization)
  Sender: EISAI
  Company Number: US-Eisai-EC-2024-169204

PATIENT
  Age: 74 Year
  Sex: Male
  Weight: 98.88 kg

DRUGS (10)
  1. LENVIMA [Suspect]
     Active Substance: LENVATINIB
     Indication: Hepatocellular carcinoma
     Route: 048
     Dates: start: 20240621, end: 20240713
  2. LENVIMA [Suspect]
     Active Substance: LENVATINIB
     Route: 048
     Dates: start: 20240716
  3. DOPTELET [Concomitant]
     Active Substance: AVATROMBOPAG MALEATE
     Indication: Product used for unknown indication
     Dosage: DOSE AND FREQUENCY UNKNOWN
  4. FERROUS SULFATE [Concomitant]
     Active Substance: FERROUS SULFATE
     Indication: Product used for unknown indication
     Dosage: DOSE AND FREQUENCY UNKNOWN
  5. IRON\VITAMIN B [Concomitant]
     Active Substance: IRON\VITAMIN B
     Indication: Product used for unknown indication
     Dosage: DOSE AND FREQUENCY UNKNOWN
  6. JARDIANCE [Concomitant]
     Active Substance: EMPAGLIFLOZIN
     Indication: Product used for unknown indication
     Dosage: DOSE AND FREQUENCY UNKNOWN
  7. LISINOPRIL [Concomitant]
     Active Substance: LISINOPRIL
     Indication: Product used for unknown indication
     Dosage: DOSE AND FREQUENCY UNKNOWN
  8. METFORMIN [Concomitant]
     Active Substance: METFORMIN HYDROCHLORIDE
     Indication: Product used for unknown indication
     Dosage: DOSE AND FREQUENCY UNKNOWN
  9. PANTOPRAZOLE [Concomitant]
     Active Substance: PANTOPRAZOLE
     Indication: Product used for unknown indication
     Dosage: DOSE AND FREQUENCY UNKNOWN
  10. PROMACTA [Concomitant]
     Active Substance: ELTROMBOPAG OLAMINE
     Indication: Product used for unknown indication
     Dosage: DOSE AND FREQUENCY UNKNOWN

REACTIONS (9)
  - Ammonia increased [Unknown]
  - Memory impairment [Unknown]
  - Gait disturbance [Not Recovered/Not Resolved]
  - Asthenia [Not Recovered/Not Resolved]
  - Dizziness [Not Recovered/Not Resolved]
  - Fatigue [Unknown]
  - Decreased appetite [Not Recovered/Not Resolved]
  - Blood pressure systolic increased [Not Recovered/Not Resolved]
  - Diarrhoea [Not Recovered/Not Resolved]

NARRATIVE: CASE EVENT DATE: 20240101
